APPROVED DRUG PRODUCT: CHLORZOXAZONE
Active Ingredient: CHLORZOXAZONE
Strength: 250MG
Dosage Form/Route: TABLET;ORAL
Application: A214702 | Product #001 | TE Code: AA
Applicant: COREPHARMA LLC
Approved: Apr 10, 2023 | RLD: No | RS: No | Type: RX